FAERS Safety Report 5097912-5 (Version None)
Quarter: 2006Q3

REPORT INFORMATION
  Report Type: 
  Country: None (occurrence: None)
  Receive Date: 20060905
  Receipt Date: 20060905
  Transmission Date: 20061208
  Serious: Yes (Hospitalization)
  Sender: FDA-Public Use
  Company Number: None

PATIENT
  Age: 54 Year
  Sex: Male

DRUGS (10)
  1. DIGOXIN [Suspect]
     Indication: VENTRICULAR TACHYCARDIA
     Dosage: 0.125 MG DAILY PO
     Route: 048
  2. AMIODARONE 200 MG [Suspect]
     Indication: CARDIOMYOPATHY
     Dosage: 200 MG DAILY PO
     Route: 048
  3. ASPIRIN [Concomitant]
  4. SIMVASTATIN [Concomitant]
  5. SPIRONOLACTONE [Concomitant]
  6. ATENOLOL [Concomitant]
  7. AMIODARONE HCL [Concomitant]
  8. LISINOPRIL [Concomitant]
  9. POTASSIUM CHLORIDE [Concomitant]
  10. DIGOXIN [Concomitant]

REACTIONS (5)
  - ASTHENIA [None]
  - BRADYCARDIA [None]
  - DIZZINESS [None]
  - RENAL FAILURE ACUTE [None]
  - THERAPEUTIC AGENT TOXICITY [None]
